FAERS Safety Report 9587434 (Version 4)
Quarter: 2014Q1

REPORT INFORMATION
  Report Type: Report from Study
  Country: MX (occurrence: MX)
  Receive Date: 20131003
  Receipt Date: 20140110
  Transmission Date: 20141002
  Serious: Yes (Death, Hospitalization, Other)
  Sender: FDA-Public Use
  Company Number: PHHY2013MX071022

PATIENT
  Age: 27 Year
  Sex: Female

DRUGS (2)
  1. SANDIMMUN NEORAL / OL [Suspect]
     Indication: NEPHROTIC SYNDROME
     Dosage: 4 DF, DAILY
     Route: 048
     Dates: start: 201301, end: 201310
  2. IRON [Concomitant]
     Dates: start: 201306

REACTIONS (12)
  - Cerebrovascular accident [Fatal]
  - Fluid retention [Unknown]
  - Cardio-respiratory arrest [Unknown]
  - Headache [Unknown]
  - Convulsion [Unknown]
  - Amnesia [Not Recovered/Not Resolved]
  - Productive cough [Not Recovered/Not Resolved]
  - Disturbance in attention [Not Recovered/Not Resolved]
  - Blood potassium increased [Not Recovered/Not Resolved]
  - Urinary tract infection [Recovered/Resolved]
  - Pyrexia [Recovered/Resolved]
  - Muscular weakness [Not Recovered/Not Resolved]
